FAERS Safety Report 18048828 (Version 1)
Quarter: 2020Q3

REPORT INFORMATION
  Report Type: Spontaneous
  Country: FR (occurrence: FR)
  Receive Date: 20200721
  Receipt Date: 20200721
  Transmission Date: 20201103
  Serious: Yes (Congenital Anomaly)
  Sender: FDA-Public Use
  Company Number: FR-CADILA HEALTHCARE LIMITED-FR-ZYDUS-031682

PATIENT

DRUGS (3)
  1. VENLAFAXINE [Suspect]
     Active Substance: VENLAFAXINE HYDROCHLORIDE
     Indication: PERINATAL DEPRESSION
     Dosage: UNK UNK,UNK ()
     Route: 064
     Dates: start: 20101230, end: 20110130
  2. FLUOXETINE [Suspect]
     Active Substance: FLUOXETINE HYDROCHLORIDE
     Indication: PERINATAL DEPRESSION
     Dosage: 20 MILLIGRAM,20 MG,QD,(INTERVAL :1 DAYS)
     Route: 064
     Dates: start: 20110130, end: 20110916
  3. DEPAKINE CHRONO [Suspect]
     Active Substance: VALPROATE SODIUM
     Indication: PRODUCT USED FOR UNKNOWN INDICATION
     Dosage: 1000 MILLIGRAM,1000 MG,QD,(INTERVAL :1 DAYS)
     Route: 064
     Dates: start: 20101230, end: 20110916

REACTIONS (2)
  - Foetal exposure during pregnancy [Unknown]
  - Polydactyly [Recovered/Resolved]

NARRATIVE: CASE EVENT DATE: 20110916
